FAERS Safety Report 8576762-9 (Version None)
Quarter: 2012Q3

REPORT INFORMATION
  Report Type: 
  Country: None (occurrence: None)
  Receive Date: 20120807
  Receipt Date: 20120803
  Transmission Date: 20120928
  Serious: Yes (Other)
  Sender: FDA-Public Use
  Company Number: US-ROCHE-1065015

PATIENT
  Sex: Female

DRUGS (1)
  1. ACCUTANE [Suspect]
     Indication: ACNE CYSTIC
     Dates: start: 19990426, end: 19991230

REACTIONS (9)
  - EYE IRRITATION [None]
  - URTICARIA [None]
  - COLITIS ULCERATIVE [None]
  - INFLAMMATORY BOWEL DISEASE [None]
  - LIP EXFOLIATION [None]
  - PTERYGIUM [None]
  - OCULAR HYPERAEMIA [None]
  - RASH MACULAR [None]
  - DRY SKIN [None]
